FAERS Safety Report 8511824-3 (Version None)
Quarter: 2012Q3

REPORT INFORMATION
  Report Type: 
  Country: None (occurrence: None)
  Receive Date: 20120711
  Receipt Date: 20120703
  Transmission Date: 20120928
  Serious: Yes (Other)
  Sender: FDA-Public Use
  Company Number: US-JNJFOC-20120701736

PATIENT
  Sex: Female
  Weight: 93.9 kg

DRUGS (4)
  1. METHYLPHENIDATE HCL [Suspect]
     Indication: ATTENTION DEFICIT/HYPERACTIVITY DISORDER
     Dosage: 54 MG (18 MG X 3) IN THE MORNING AND 36 MG (18 MG X 2) IN THE AFTERNOON
     Route: 048
  2. CONCERTA [Suspect]
     Indication: ATTENTION DEFICIT/HYPERACTIVITY DISORDER
     Dosage: 54 MG (18 MG X 3) IN THE MORNING AND 36 MG (18 MG X 2) IN THE AFTERNOON
     Route: 048
  3. WELLBUTRIN [Concomitant]
     Indication: ANXIETY
     Route: 048
  4. WELLBUTRIN [Concomitant]
     Indication: DEPRESSION
     Route: 048

REACTIONS (5)
  - DEPRESSION [None]
  - ANXIETY [None]
  - DRUG EFFECT DECREASED [None]
  - THERAPEUTIC RESPONSE UNEXPECTED [None]
  - BIPOLAR DISORDER [None]
